FAERS Safety Report 9845403 (Version 1)
Quarter: 2014Q1

REPORT INFORMATION
  Report Type: Spontaneous
  Country: US (occurrence: None)
  Receive Date: 20140122
  Receipt Date: 20140122
  Transmission Date: 20141002
  Serious: Yes (Death)
  Sender: FDA-Public Use
  Company Number: POI0573201400001

PATIENT
  Age: 43 Year
  Sex: Female

DRUGS (2)
  1. NIFEDIPINE [Suspect]
     Dates: end: 2012
  2. COCAINE [Suspect]
     Dates: end: 2012

REACTIONS (2)
  - Exposure via ingestion [None]
  - Exposure via inhalation [None]
